FAERS Safety Report 6849083-X (Version None)
Quarter: 2010Q3

REPORT INFORMATION
  Report Type: 
  Country: None (occurrence: None)
  Receive Date: 20100716
  Receipt Date: 20070926
  Transmission Date: 20110219
  Serious: No
  Sender: FDA-Public Use
  Company Number: US-PFIZER INC-2007081941

PATIENT
  Sex: Female
  Weight: 72.727 kg

DRUGS (3)
  1. CHANTIX [Suspect]
     Indication: SMOKING CESSATION THERAPY
     Route: 048
     Dates: start: 20070827, end: 20070920
  2. LEVORA 0.15/30-28 [Concomitant]
  3. MULTIPLE VITAMINS [Concomitant]

REACTIONS (3)
  - INSOMNIA [None]
  - PRURITUS [None]
  - RASH [None]
